FAERS Safety Report 20809463 (Version 2)
Quarter: 2022Q2

REPORT INFORMATION
  Report Type: Spontaneous
  Country: US (occurrence: US)
  Receive Date: 20220510
  Receipt Date: 20220525
  Transmission Date: 20220720
  Serious: Yes (Other)
  Sender: FDA-Public Use
  Company Number: US-INTRA-CELLULAR THERAPIES, INC.-2022ICT00414

PATIENT
  Age: 4 Decade
  Sex: Female
  Weight: 136.05 kg

DRUGS (7)
  1. CAPLYTA [Suspect]
     Active Substance: LUMATEPERONE
     Indication: Bipolar disorder
     Dosage: 42 MG, 1X/DAY AT NOON
     Dates: start: 20220407, end: 2022
  2. CAPLYTA [Suspect]
     Active Substance: LUMATEPERONE
     Dosage: DECREASED
     Dates: start: 2022
  3. RISPERIDONE [Suspect]
     Active Substance: RISPERIDONE
     Dosage: UNK
  4. VALIUM [Suspect]
     Active Substance: DIAZEPAM
     Dosage: ^SMALL DOSE^
  5. METFORMIN [Suspect]
     Active Substance: METFORMIN HYDROCHLORIDE
     Indication: Glucose tolerance impaired
     Dosage: 1500 MG
     Dates: start: 202204, end: 202204
  6. METFORMIN [Suspect]
     Active Substance: METFORMIN HYDROCHLORIDE
     Dosage: 500 MG
     Dates: start: 202204
  7. METFORMIN [Suspect]
     Active Substance: METFORMIN HYDROCHLORIDE
     Dosage: 500 MG

REACTIONS (3)
  - Stevens-Johnson syndrome [Recovered/Resolved]
  - Burning sensation [Recovered/Resolved]
  - Off label use [Not Recovered/Not Resolved]

NARRATIVE: CASE EVENT DATE: 20220101
